FAERS Safety Report 8627834 (Version 6)
Quarter: 2013Q1

REPORT INFORMATION
  Report Type: Spontaneous
  Country: BR (occurrence: BR)
  Receive Date: 20120621
  Receipt Date: 20130325
  Transmission Date: 20140127
  Serious: Yes (Death, Hospitalization)
  Sender: FDA-Public Use
  Company Number: BR-PFIZER INC-2012146045

PATIENT
  Age: 76 Year
  Sex: Male
  Weight: 80 kg

DRUGS (5)
  1. SUTENT [Suspect]
     Indication: RENAL CELL CARCINOMA
     Dosage: 50 MG, 1X/DAY, CYCLE 4X2
     Route: 048
     Dates: start: 20111231
  2. PURAN T4 [Concomitant]
     Indication: THYROID DISORDER
     Dosage: 100 MG DAILY
  3. FINASTERIDE [Concomitant]
     Dosage: 120 MG, 1X/DAY (ONE TABLET DAILY)
  4. B COMPLEX [Concomitant]
  5. FOLIC ACID [Concomitant]

REACTIONS (9)
  - Death [Fatal]
  - Lung infection [Recovering/Resolving]
  - Feeling abnormal [Unknown]
  - Dyspnoea [Unknown]
  - Immunodeficiency [Unknown]
  - Pneumonia [Unknown]
  - Urinary tract infection [Unknown]
  - Hyperkeratosis [Recovered/Resolved]
  - Weight decreased [Unknown]
